FAERS Safety Report 24728761 (Version 2)
Quarter: 2025Q3

REPORT INFORMATION
  Report Type: Spontaneous
  Country: EU (occurrence: EU)
  Receive Date: 20241212
  Receipt Date: 20250810
  Transmission Date: 20251020
  Serious: Yes (Other)
  Sender: ALEXION PHARMACEUTICALS
  Company Number: None

PATIENT
  Age: 82 Year
  Sex: Female

DRUGS (10)
  1. DAPAGLIFLOZIN [Suspect]
     Active Substance: DAPAGLIFLOZIN
     Indication: Cardiac failure
     Dates: start: 20241015, end: 20241017
  2. OMEPRAZOLE [Concomitant]
     Active Substance: OMEPRAZOLE
     Dosage: 20 MILLIGRAM, Q12H
     Dates: start: 20160421
  3. Dabigatran eteksylan stada [Concomitant]
     Dosage: 110 MILLIGRAM, Q12H
     Dates: start: 20230711
  4. FOLIC ACID [Concomitant]
     Active Substance: FOLIC ACID
  5. TORSEMIDE [Concomitant]
     Active Substance: TORSEMIDE
     Dates: start: 20170503, end: 20241018
  6. BISOPROLOL [Concomitant]
     Active Substance: BISOPROLOL
     Dosage: 5 MILLIGRAM, Q12H
     Dates: start: 20160421
  7. ALDACTONE [Concomitant]
     Active Substance: SPIRONOLACTONE
  8. AMLODIPINE BESYLATE\HYDROCHLOROTHIAZIDE\OLMESARTAN MEDOXOMIL [Suspect]
     Active Substance: AMLODIPINE BESYLATE\HYDROCHLOROTHIAZIDE\OLMESARTAN MEDOXOMIL
  9. ATORVASTATIN MAGNESIUM [Suspect]
     Active Substance: ATORVASTATIN MAGNESIUM
  10. NALOXONE HYDROCHLORIDE\OXYCODONE HYDROCHLORIDE [Concomitant]
     Active Substance: NALOXONE HYDROCHLORIDE\OXYCODONE HYDROCHLORIDE
     Dosage: 1 DOSAGE FORM, Q12H
     Dates: start: 20240809

REACTIONS (3)
  - Dizziness [Not Recovered/Not Resolved]
  - Vision blurred [Not Recovered/Not Resolved]
  - Malaise [Not Recovered/Not Resolved]

NARRATIVE: CASE EVENT DATE: 20241016
